FAERS Safety Report 8624370-3 (Version None)
Quarter: 2012Q3

REPORT INFORMATION
  Report Type: 
  Country: None (occurrence: None)
  Receive Date: 20120827
  Receipt Date: 20120816
  Transmission Date: 20120928
  Serious: Yes (Other)
  Sender: FDA-Public Use
  Company Number: CN-ASTRAZENECA-2012SE61190

PATIENT
  Age: 30459 Day
  Sex: Female
  Weight: 50 kg

DRUGS (2)
  1. AMIODARONE HCL [Suspect]
     Route: 065
  2. METOPROLOL TARTRATE [Suspect]
     Indication: CORONARY ARTERY DISEASE
     Route: 048
     Dates: start: 20101120, end: 20110429

REACTIONS (2)
  - NODAL RHYTHM [None]
  - ATRIAL FIBRILLATION [None]
